FAERS Safety Report 7790562-9 (Version None)
Quarter: 2011Q3

REPORT INFORMATION
  Report Type: 
  Country: None (occurrence: None)
  Receive Date: 20110930
  Receipt Date: 20110928
  Transmission Date: 20111222
  Serious: Yes (Other)
  Sender: FDA-Public Use
  Company Number: GB-PFIZER INC-2011231856

PATIENT
  Age: 55 Year
  Sex: Male

DRUGS (1)
  1. VARENICLINE TARTRATE [Suspect]
     Dosage: 1 MG, 2X/DAY

REACTIONS (3)
  - AGGRESSION [None]
  - MEMORY IMPAIRMENT [None]
  - PERSONALITY CHANGE [None]
